FAERS Safety Report 7619986-7 (Version None)
Quarter: 2011Q3

REPORT INFORMATION
  Report Type: 
  Country: None (occurrence: None)
  Receive Date: 20110719
  Receipt Date: 20110707
  Transmission Date: 20111222
  Serious: Yes (Hospitalization)
  Sender: FDA-Public Use
  Company Number: CA-JNJFOC-20110704824

PATIENT
  Sex: Male
  Weight: 55.5 kg

DRUGS (4)
  1. REMICADE [Suspect]
     Route: 042
     Dates: start: 20110524
  2. SOLU-CORTEF [Concomitant]
     Indication: PREMEDICATION
  3. REMICADE [Suspect]
     Indication: CROHN'S DISEASE
     Route: 042
     Dates: start: 20071119
  4. ANTIDEPRESSANT [Concomitant]

REACTIONS (2)
  - DIZZINESS [None]
  - ASTHENIA [None]
